FAERS Safety Report 4290560-6 (Version None)
Quarter: 2004Q1

REPORT INFORMATION
  Report Type: 
  Country: None (occurrence: None)
  Receive Date: 20040204
  Receipt Date: 20040116
  Transmission Date: 20041129
  Serious: Yes (Life-Threatening, Hospitalization)
  Sender: FDA-Public Use
  Company Number: 2004SA000007

PATIENT
  Age: 42 Year
  Sex: Female
  Weight: 126 kg

DRUGS (18)
  1. THYMOGLOBULIN [Suspect]
     Indication: PANCREAS TRANSPLANT REJECTION
     Dosage: 1.5 MG/KG; X1; INTRAVENOUS
     Route: 040
     Dates: start: 20040106, end: 20040106
  2. ELMIRON [Concomitant]
  3. PROMETHAZINE [Concomitant]
  4. OXYCODONE HCL [Concomitant]
  5. HEPARIN [Concomitant]
  6. BENADRYL [Concomitant]
  7. TYLENOL (CAPLET) [Concomitant]
  8. DETROL [Concomitant]
  9. PROGRAF [Concomitant]
  10. LEVOTHYROXINE SODIUM [Concomitant]
  11. LANTUS [Concomitant]
  12. IRBESARTAN [Concomitant]
  13. GLIMEPIRIDE [Concomitant]
  14. AMLODIPINE [Concomitant]
  15. EPINEPHRINE [Concomitant]
  16. CIMETIDINE HCL [Concomitant]
  17. FUROSEMIDE [Concomitant]
  18. DEXAMETHASONE [Concomitant]

REACTIONS (8)
  - ANAPHYLACTIC REACTION [None]
  - DISSEMINATED INTRAVASCULAR COAGULATION [None]
  - HYPOTENSION [None]
  - HYPOXIA [None]
  - RASH [None]
  - RENAL FAILURE [None]
  - RESPIRATORY ARREST [None]
  - TACHYPNOEA [None]
